FAERS Safety Report 7669983-0 (Version None)
Quarter: 2011Q3

REPORT INFORMATION
  Report Type: 
  Country: None (occurrence: None)
  Receive Date: 20110808
  Receipt Date: 20110727
  Transmission Date: 20111222
  Serious: Yes (Hospitalization)
  Sender: FDA-Public Use
  Company Number: FR-BAYER-2011-068442

PATIENT
  Age: 12 Year
  Sex: Female

DRUGS (2)
  1. NAPROXEN SODIUM [Suspect]
     Indication: JUVENILE ARTHRITIS
     Dosage: 250 MG, BID
     Dates: start: 20110522, end: 20110607
  2. EQUISETUM ARVENSE [Suspect]
     Indication: JUVENILE ARTHRITIS
     Dosage: 40 GTT, QD
     Dates: start: 20110527, end: 20110614

REACTIONS (2)
  - ABDOMINAL PAIN UPPER [None]
  - CYTOLYTIC HEPATITIS [None]
